FAERS Safety Report 25322149 (Version 1)
Quarter: 2025Q2

REPORT INFORMATION
  Report Type: Spontaneous
  Country: US (occurrence: US)
  Receive Date: 20250516
  Receipt Date: 20250516
  Transmission Date: 20250716
  Serious: No
  Sender: ROCHE
  Company Number: US-ROCHE-10000276484

PATIENT
  Sex: Female

DRUGS (2)
  1. ACTEMRA ACTPEN [Suspect]
     Active Substance: TOCILIZUMAB
     Indication: Giant cell arteritis
     Dosage: STRENGTH : 169MG/0.9M
     Route: 058
     Dates: start: 202304
  2. fasenra syr [Concomitant]

REACTIONS (2)
  - Contusion [Unknown]
  - Skin laceration [Unknown]
